FAERS Safety Report 16724206 (Version 1)
Quarter: 2019Q3

REPORT INFORMATION
  Report Type: Spontaneous
  Country: US (occurrence: US)
  Receive Date: 20190703
  Receipt Date: 20190703
  Transmission Date: 20191005
  Serious: No
  Sender: FDA-Public Use
  Company Number: None

PATIENT
  Age: 54 Year
  Weight: 81.65 kg

DRUGS (1)
  1. PREDNISONE ACETATE [Suspect]
     Active Substance: PREDNISONE ACETATE
     Indication: PROPHYLAXIS AGAINST TRANSPLANT REJECTION
     Route: 061
     Dates: start: 20170427

REACTIONS (2)
  - Product quality issue [None]
  - Corneal graft rejection [None]

NARRATIVE: CASE EVENT DATE: 20170427
